FAERS Safety Report 4493896-9 (Version None)
Quarter: 2004Q4

REPORT INFORMATION
  Report Type: 
  Country: None (occurrence: None)
  Receive Date: 20041105
  Receipt Date: 20041022
  Transmission Date: 20050328
  Serious: Yes (Other)
  Sender: FDA-Public Use
  Company Number: SE-JNJFOC-20040806454

PATIENT
  Age: 83 Year
  Sex: Female
  Weight: 47 kg

DRUGS (10)
  1. REMICADE [Suspect]
     Route: 042
  2. METHOTREXATE [Concomitant]
  3. SELOKEN [Concomitant]
  4. PROPAVAN [Concomitant]
  5. CITODON [Concomitant]
  6. CITODON [Concomitant]
  7. PREDNISOLONE [Concomitant]
  8. CETIPRIN NOVUM [Concomitant]
  9. DITROPAN [Concomitant]
  10. LEVAXIN [Concomitant]

REACTIONS (9)
  - ACID FAST BACILLI INFECTION [None]
  - ANAEMIA [None]
  - BRONCHIOLITIS [None]
  - GENERAL PHYSICAL HEALTH DETERIORATION [None]
  - PNEUMONIA [None]
  - PYREXIA [None]
  - RECTAL HAEMORRHAGE [None]
  - TUBERCULOSIS [None]
  - WEIGHT DECREASED [None]
